FAERS Safety Report 7432812-4 (Version None)
Quarter: 2011Q2

REPORT INFORMATION
  Report Type: 
  Country: None (occurrence: None)
  Receive Date: 20110422
  Receipt Date: 20110414
  Transmission Date: 20111010
  Serious: Yes (Hospitalization)
  Sender: FDA-Public Use
  Company Number: NL-PERRIGO-11NL003152

PATIENT
  Age: 12 Year
  Sex: Female
  Weight: 40 kg

DRUGS (6)
  1. PROPOFOL [Suspect]
     Indication: SEDATION
     Dosage: 2.5 MG/KG/HR FOR 17 HOURS
     Route: 065
  2. DICLOFENAC [Concomitant]
     Indication: ANALGESIC THERAPY
     Route: 065
  3. SEVOFLURANE [Suspect]
     Indication: GENERAL ANAESTHESIA
     Route: 065
  4. REMIFENTANIL [Concomitant]
     Indication: GENERAL ANAESTHESIA
  5. ACETAMINOPHEN 650 MG 363 [Suspect]
     Indication: ANALGESIC THERAPY
     Dosage: 69 NMOL/ML
     Route: 054
  6. HYDROMORPHONE HCL [Concomitant]
     Indication: ANALGESIC THERAPY
     Route: 065

REACTIONS (4)
  - ALANINE AMINOTRANSFERASE INCREASED [None]
  - MITOCHONDRIAL CYTOPATHY [None]
  - ACUTE HEPATIC FAILURE [None]
  - ENCEPHALOPATHY [None]
